FAERS Safety Report 12060935 (Version 1)
Quarter: 2016Q1

REPORT INFORMATION
  Report Type: Spontaneous
  Country: US (occurrence: US)
  Receive Date: 20160210
  Receipt Date: 20160210
  Transmission Date: 20160526
  Serious: No
  Sender: FDA-Public Use
  Company Number: US-MYLANLABS-2015M1047021

PATIENT
  Age: 19 Year
  Sex: Female

DRUGS (1)
  1. XULANE [Suspect]
     Active Substance: ETHINYL ESTRADIOL\NORELGESTROMIN
     Indication: CONTRACEPTION
     Dosage: 150/35 ?G, QD, CHANGED QW X3W, OFF 1W
     Route: 062
     Dates: start: 20151126

REACTIONS (4)
  - Application site pruritus [Recovered/Resolved]
  - Application site erythema [None]
  - Product adhesion issue [None]
  - Application site reaction [Recovered/Resolved]

NARRATIVE: CASE EVENT DATE: 201511
